FAERS Safety Report 8512561 (Version 2)
Quarter: 2013Q3

REPORT INFORMATION
  Report Type: Spontaneous
  Country: US (occurrence: US)
  Receive Date: 20120413
  Receipt Date: 20130923
  Transmission Date: 20140515
  Serious: No
  Sender: FDA-Public Use
  Company Number: US-ASTRAZENECA-2011SE63050

PATIENT
  Age: 73 Year
  Sex: Female
  Weight: 68 kg

DRUGS (15)
  1. NEXIUM [Suspect]
     Indication: GASTROOESOPHAGEAL REFLUX DISEASE
     Route: 048
  2. NEXIUM [Suspect]
     Indication: GASTROOESOPHAGEAL REFLUX DISEASE
     Route: 048
     Dates: start: 2010, end: 201307
  3. CRESTOR [Suspect]
     Indication: BLOOD CHOLESTEROL INCREASED
     Route: 048
  4. PRILOSEC [Suspect]
     Indication: GASTROOESOPHAGEAL REFLUX DISEASE
     Dosage: DAILY
     Route: 048
  5. PRILOSEC [Suspect]
     Indication: GASTROOESOPHAGEAL REFLUX DISEASE
     Dosage: DAILY
     Route: 048
  6. HCTZ [Suspect]
     Indication: BLOOD PRESSURE ABNORMAL
     Route: 048
  7. HCTZ [Suspect]
     Indication: BLOOD PRESSURE ABNORMAL
     Route: 048
  8. SYNTHROID [Concomitant]
     Indication: THYROID DISORDER
  9. FENOFIBRATE [Concomitant]
     Indication: BLOOD TRIGLYCERIDES ABNORMAL
  10. PROPANOLOL [Concomitant]
     Indication: BLOOD PRESSURE ABNORMAL
  11. PRIMADONE [Concomitant]
     Indication: TREMOR
  12. ASPIRIN [Concomitant]
  13. BIOTIN [Concomitant]
     Indication: ALOPECIA
  14. SERTRALINE [Concomitant]
     Indication: DEPRESSION
  15. RANITIDINE [Concomitant]

REACTIONS (11)
  - Gastrooesophageal reflux disease [Unknown]
  - Laboratory test abnormal [Unknown]
  - Oesophageal pain [Unknown]
  - Regurgitation [Unknown]
  - Arthropathy [Unknown]
  - Blood cholesterol increased [Unknown]
  - Alopecia [Unknown]
  - Abdominal discomfort [Unknown]
  - Off label use [Unknown]
  - Drug ineffective [Unknown]
  - Drug dose omission [Unknown]
